FAERS Safety Report 10441905 (Version 1)
Quarter: 2014Q3

REPORT INFORMATION
  Report Type: Spontaneous
  Country: US (occurrence: US)
  Receive Date: 20140909
  Receipt Date: 20140909
  Transmission Date: 20150326
  Serious: Yes (Death, Hospitalization)
  Sender: FDA-Public Use
  Company Number: US-GLAXOSMITHKLINE-A1087503A

PATIENT
  Age: 79 Year
  Sex: Male

DRUGS (3)
  1. UNSPECIFIED MEDICATIONS [Concomitant]
     Active Substance: UNSPECIFIED INGREDIENT
  2. VERAMYST [Suspect]
     Active Substance: FLUTICASONE FUROATE
     Indication: PRODUCT USED FOR UNKNOWN INDICATION
  3. ADVAIR HFA [Suspect]
     Active Substance: FLUTICASONE PROPIONATE\SALMETEROL XINAFOATE
     Indication: CHRONIC OBSTRUCTIVE PULMONARY DISEASE

REACTIONS (10)
  - Death [Fatal]
  - Myocardial infarction [Unknown]
  - Sinusitis [Unknown]
  - Cardiac pacemaker insertion [Unknown]
  - Influenza like illness [Unknown]
  - Implantable defibrillator insertion [Unknown]
  - Lung neoplasm malignant [Unknown]
  - Metastases to bladder [Unknown]
  - Cerebrovascular accident [Unknown]
  - Pneumonia [Unknown]
